FAERS Safety Report 23481293 (Version 1)
Quarter: 2024Q1

REPORT INFORMATION
  Report Type: Spontaneous
  Country: US (occurrence: US)
  Receive Date: 20240205
  Receipt Date: 20240205
  Transmission Date: 20240410
  Serious: Yes (Other)
  Sender: FDA-Public Use
  Company Number: US-HIKMA PHARMACEUTICALS USA INC.-US-H14001-24-00661

PATIENT

DRUGS (2)
  1. CHLORPROMAZINE [Suspect]
     Active Substance: CHLORPROMAZINE
     Indication: Agitation
     Dosage: 50 MILLIGRAM, QID
     Route: 030
  2. HALOPERIDOL [Suspect]
     Active Substance: HALOPERIDOL
     Indication: Schizophrenia
     Dosage: 5 MILLIGRAM
     Route: 030

REACTIONS (2)
  - Malignant catatonia [Recovered/Resolved]
  - Neuroleptic malignant syndrome [Recovered/Resolved]
